FAERS Safety Report 20817545 (Version 1)
Quarter: 2022Q2

REPORT INFORMATION
  Report Type: Spontaneous
  Country: US (occurrence: US)
  Receive Date: 20220512
  Receipt Date: 20220512
  Transmission Date: 20220721
  Serious: No
  Sender: FDA-Public Use
  Company Number: US-PFIZER INC-202200483446

PATIENT
  Age: 16 Year
  Sex: Male

DRUGS (1)
  1. GENOTROPIN [Suspect]
     Active Substance: SOMATROPIN
     Indication: Growth hormone deficiency
     Dosage: 1.4 MG, DAILY(1.4MG GENOTROPIN WITH GENOTROPIN PEN 12 DAILY)
     Dates: start: 2018

REACTIONS (1)
  - Device issue [Not Recovered/Not Resolved]

NARRATIVE: CASE EVENT DATE: 20210325
